FAERS Safety Report 8456093-8 (Version None)
Quarter: 2012Q2

REPORT INFORMATION
  Report Type: 
  Country: None (occurrence: None)
  Receive Date: 20120621
  Receipt Date: 20120618
  Transmission Date: 20120825
  Serious: Yes (Other)
  Sender: FDA-Public Use
  Company Number: PHHY2012IT052773

PATIENT
  Sex: Female

DRUGS (8)
  1. PREDNISONE TAB [Concomitant]
  2. LEVOTHYROXINE SODIUM [Concomitant]
  3. LOSARTAN ACTAVIS [Concomitant]
  4. PANTOPRAZOLE SODIUM [Concomitant]
  5. SIMVASTATIN [Concomitant]
  6. ZOMETA [Suspect]
     Indication: METASTASES TO BONE
     Dosage: 4 MG, EVERY 28 DAYS
     Dates: start: 20090201, end: 20111231
  7. METHOTREXATE [Concomitant]
  8. FEMARA [Concomitant]

REACTIONS (2)
  - OSTEONECROSIS OF JAW [None]
  - INFLAMMATION [None]
